FAERS Safety Report 9337453 (Version 8)
Quarter: 2014Q3

REPORT INFORMATION
  Report Type: Spontaneous
  Country: US (occurrence: US)
  Receive Date: 20130607
  Receipt Date: 20140930
  Transmission Date: 20150326
  Serious: Yes (Hospitalization, Disabling, Other)
  Sender: FDA-Public Use
  Company Number: US-009507513-1305USA017852

PATIENT
  Sex: Female
  Weight: 72.29 kg

DRUGS (5)
  1. FOSAMAX [Suspect]
     Active Substance: ALENDRONATE SODIUM
     Indication: OSTEOPOROSIS
  2. ALENDRONATE SODIUM. [Suspect]
     Active Substance: ALENDRONATE SODIUM
     Indication: OSTEOPOROSIS
  3. FOSAMAX [Suspect]
     Active Substance: ALENDRONATE SODIUM
     Indication: OSTEOPOROSIS PROPHYLAXIS
     Dosage: 70 MG, QW
     Route: 048
     Dates: start: 20040304, end: 20110512
  4. ALENDRONATE SODIUM. [Suspect]
     Active Substance: ALENDRONATE SODIUM
     Indication: OSTEOPOROSIS PROPHYLAXIS
     Dosage: 70 MG, UNK
     Route: 048
     Dates: start: 20080229, end: 20110512
  5. LEVOXYL [Concomitant]
     Active Substance: LEVOTHYROXINE SODIUM
     Indication: HYPOTHYROIDISM
     Dosage: UNK
     Dates: start: 2001

REACTIONS (42)
  - Osteopenia [Unknown]
  - Atrioventricular block first degree [Unknown]
  - Debridement [Unknown]
  - Femur fracture [Recovering/Resolving]
  - Anaemia postoperative [Recovering/Resolving]
  - Hiatus hernia [Unknown]
  - Tendon rupture [Unknown]
  - Spondylolysis [Unknown]
  - Back pain [Unknown]
  - Joint arthroplasty [Unknown]
  - Intramedullary rod insertion [Unknown]
  - Calcinosis [Unknown]
  - Osteomalacia [Unknown]
  - Vertebral foraminal stenosis [Unknown]
  - Dilatation ventricular [Unknown]
  - Asthenia [Unknown]
  - Pain in extremity [Unknown]
  - Intervertebral disc protrusion [Unknown]
  - Chronic obstructive pulmonary disease [Not Recovered/Not Resolved]
  - Arthritis [Unknown]
  - Depression [Unknown]
  - Osteoarthritis [Unknown]
  - Cervical spinal stenosis [Unknown]
  - Hypertension [Unknown]
  - Sciatica [Unknown]
  - Gout [Unknown]
  - Osteoarthritis [Unknown]
  - Wrist fracture [Unknown]
  - Dyslipidaemia [Unknown]
  - Breast cyst [Unknown]
  - Neuropathy peripheral [Unknown]
  - Irritable bowel syndrome [Unknown]
  - Haemangioma of bone [Unknown]
  - Fatigue [Unknown]
  - Open reduction of fracture [Unknown]
  - Blood urea increased [Unknown]
  - Foot deformity [Unknown]
  - Compression fracture [Not Recovered/Not Resolved]
  - Electrocardiogram ST segment abnormal [Unknown]
  - Muscle atrophy [Unknown]
  - Arthralgia [Unknown]
  - Drug ineffective [Unknown]

NARRATIVE: CASE EVENT DATE: 2008
